FAERS Safety Report 20932859 (Version 3)
Quarter: 2022Q3

REPORT INFORMATION
  Report Type: Spontaneous
  Country: US (occurrence: US)
  Receive Date: 20220608
  Receipt Date: 20220726
  Transmission Date: 20221027
  Serious: No
  Sender: FDA-Public Use
  Company Number: US-PFIZER INC-202200808485

PATIENT
  Age: 63 Year
  Sex: Female

DRUGS (1)
  1. PAXLOVID [Suspect]
     Active Substance: NIRMATRELVIR\RITONAVIR
     Indication: COVID-19 treatment
     Dosage: [PF-07321332 300 MG]/[RITONAVIR 100 MG]; 2X/DAY;
     Route: 048
     Dates: start: 20220518, end: 202205

REACTIONS (8)
  - Illness [Unknown]
  - Headache [Unknown]
  - Eyelid function disorder [Unknown]
  - Diarrhoea [Unknown]
  - Vomiting [Unknown]
  - Dysgeusia [Unknown]
  - Product taste abnormal [Not Recovered/Not Resolved]
  - Dysbiosis [Not Recovered/Not Resolved]

NARRATIVE: CASE EVENT DATE: 20220501
